FAERS Safety Report 18904756 (Version 1)
Quarter: 2021Q1

REPORT INFORMATION
  Report Type: Report from Study
  Country: HU (occurrence: HU)
  Receive Date: 20210217
  Receipt Date: 20210217
  Transmission Date: 20210420
  Serious: Yes (Death, Hospitalization)
  Sender: FDA-Public Use
  Company Number: NVSC2021HU037210

PATIENT
  Age: 62 Year
  Sex: Male

DRUGS (1)
  1. ZARZIO [Suspect]
     Active Substance: FILGRASTIM
     Indication: NEUTROPENIA
     Dosage: 1 DF, QD (1 X 1)
     Route: 058
     Dates: start: 20210122

REACTIONS (1)
  - Death [Fatal]

NARRATIVE: CASE EVENT DATE: 20210208
